FAERS Safety Report 5287614-4 (Version None)
Quarter: 2007Q1

REPORT INFORMATION
  Report Type: 
  Country: None (occurrence: None)
  Receive Date: 20070124
  Receipt Date: 20060117
  Transmission Date: 20070707
  Serious: Yes (Hospitalization, Other)
  Sender: FDA-Public Use
  Company Number: WAES 0601USA01913

PATIENT
  Age: 57 Year
  Sex: Female

DRUGS (1)
  1. INVANZ [Suspect]
     Indication: POSTOPERATIVE WOUND INFECTION
     Dosage: INJ

REACTIONS (1)
  - BLOOD CREATININE INCREASED [None]
